FAERS Safety Report 23348590 (Version 1)
Quarter: 2023Q4

REPORT INFORMATION
  Report Type: Report from Study
  Country: US (occurrence: US)
  Receive Date: 20231228
  Receipt Date: 20231228
  Transmission Date: 20240110
  Serious: Yes (Death, Other)
  Sender: FDA-Public Use
  Company Number: US-ABBVIE-5562161

PATIENT
  Age: 79 Year
  Sex: Female

DRUGS (4)
  1. VENCLEXTA [Suspect]
     Active Substance: VENETOCLAX
     Indication: Myelodysplastic syndrome
     Dosage: DAILY/TAKE 4 TABLETS (400MG) ONCE DAILY FOR 2 WEEKS ON, THEN 2 WEEKS OFF;FORM STRENGTH: 100 MG
     Route: 048
  2. VENCLEXTA [Suspect]
     Active Substance: VENETOCLAX
     Indication: Myelodysplastic syndrome
     Dosage: TAKE 3 TABLET(S) BY MOUTH EVERY DAY WITH BREAKFAST 1 WEEK(S) ON, 3 WEEK(S) OFF; FORM STRENGTH: 10...
     Route: 048
  3. VENCLEXTA [Suspect]
     Active Substance: VENETOCLAX
     Indication: Myelodysplastic syndrome
     Dosage: TAKE 1 TABLET BY MOUTH (100MG) EVERY DAY WITH BREAKFAST FOR 5 DAYS, THEN 37 DAYS OFF; FORM STRENG...
     Route: 048
  4. DECITABINE [Concomitant]
     Active Substance: DECITABINE
     Indication: Product used for unknown indication

REACTIONS (3)
  - Death [Fatal]
  - Cardiac pacemaker insertion [Unknown]
  - Off label use [Unknown]

NARRATIVE: CASE EVENT DATE: 20231130
